FAERS Safety Report 7145336-9 (Version None)
Quarter: 2010Q4

REPORT INFORMATION
  Report Type: 
  Country: None (occurrence: None)
  Receive Date: 20101208
  Receipt Date: 20101203
  Transmission Date: 20110411
  Serious: Yes (Hospitalization, Other)
  Sender: FDA-Public Use
  Company Number: US-PFIZER INC-2010091922

PATIENT
  Sex: Female

DRUGS (15)
  1. CHANTIX [Suspect]
     Indication: SMOKING CESSATION THERAPY
     Dosage: 1 MG, 2X/DAY
     Dates: start: 20060101, end: 20091125
  2. PREMPRO [Concomitant]
     Indication: ROUTINE HEALTH MAINTENANCE
     Dosage: UNK
     Dates: start: 19890101, end: 20100330
  3. PREVACID [Concomitant]
     Indication: GASTROOESOPHAGEAL REFLUX DISEASE
     Dosage: UNK
     Dates: start: 19950101, end: 20100320
  4. LOTREL [Concomitant]
     Indication: HYPERTENSION
     Dosage: UNK
     Dates: start: 20060101, end: 20100330
  5. XANAX [Concomitant]
     Indication: ANXIETY
     Dosage: UNK
     Dates: start: 20060101, end: 20100329
  6. TRAZODONE [Concomitant]
     Indication: SLEEP DISORDER THERAPY
     Dosage: UNK
     Dates: start: 20060101, end: 20100329
  7. CIPROFLOXACIN [Concomitant]
     Dosage: UNK
     Dates: start: 20070110, end: 20100110
  8. PHENAZOPYRIDINE [Concomitant]
     Dosage: UNK
     Dates: start: 20070110, end: 20091222
  9. SERTRALINE [Concomitant]
     Dosage: UNK
     Dates: start: 20070110, end: 20091217
  10. ALPRAZOLAM [Concomitant]
     Dosage: UNK
     Dates: start: 20070216, end: 20091230
  11. ACIPHEX [Concomitant]
     Dosage: UNK
     Dates: start: 20070216, end: 20070618
  12. LEVAQUIN [Concomitant]
     Dosage: UNK
     Dates: start: 20070225, end: 20070225
  13. AMBIEN [Concomitant]
     Dosage: UNK
     Dates: start: 20070517, end: 20070618
  14. ACULAR ^ALLERGAN^ [Concomitant]
     Dosage: UNK
     Dates: start: 20070525, end: 20070601
  15. GATIFLOXACIN [Concomitant]
     Dosage: UNK
     Dates: start: 20070523, end: 20070523

REACTIONS (8)
  - ABNORMAL DREAMS [None]
  - AMNESIA [None]
  - ANXIETY [None]
  - DEPRESSION [None]
  - FEAR [None]
  - INTENTIONAL OVERDOSE [None]
  - SUICIDE ATTEMPT [None]
  - WITHDRAWAL SYNDROME [None]
